FAERS Safety Report 4914332-1 (Version None)
Quarter: 2006Q1

REPORT INFORMATION
  Report Type: 
  Country: None (occurrence: None)
  Receive Date: 20060213
  Receipt Date: 20060203
  Transmission Date: 20060701
  Serious: Yes (Other)
  Sender: FDA-Public Use
  Company Number: 2006-01-1439

PATIENT
  Age: 82 Year
  Sex: Male

DRUGS (7)
  1. PROVENTIL-HFA [Suspect]
     Indication: WHEEZING
     Dosage: ORAL AER INH
     Route: 055
  2. SAW PALMETTO [Concomitant]
  3. CAPIGEN COMPLEX [Concomitant]
  4. GLYCOSAMINOLGLYCANS [Concomitant]
  5. BACTRIM [Concomitant]
  6. HYDROCHLOROTHIAZIDE [Concomitant]
  7. PULMICORT [Concomitant]

REACTIONS (3)
  - HIP FRACTURE [None]
  - PHARMACEUTICAL PRODUCT COMPLAINT [None]
  - WRONG TECHNIQUE IN DRUG USAGE PROCESS [None]
